FAERS Safety Report 4339432-9 (Version None)
Quarter: 2004Q2

REPORT INFORMATION
  Report Type: 
  Country: None (occurrence: None)
  Receive Date: 20040415
  Receipt Date: 20040406
  Transmission Date: 20050107
  Serious: Yes (Death)
  Sender: FDA-Public Use
  Company Number: US-GLAXOSMITHKLINE-A0506081B

PATIENT
  Sex: Male
  Weight: 3.6 kg

DRUGS (1)
  1. BUPROPION HCL [Suspect]
     Dosage: 150MG PER DAY
     Dates: start: 20030924, end: 20031210

REACTIONS (2)
  - DRUG EXPOSURE DURING PREGNANCY [None]
  - SUDDEN INFANT DEATH SYNDROME [None]
